FAERS Safety Report 15120828 (Version 1)
Quarter: 2018Q3

REPORT INFORMATION
  Report Type: Spontaneous
  Country: US (occurrence: US)
  Receive Date: 20180709
  Receipt Date: 20180709
  Transmission Date: 20181010
  Serious: No
  Sender: FDA-Public Use
  Company Number: US-SA-2018SA179558

PATIENT

DRUGS (1)
  1. LEMTRADA [Suspect]
     Active Substance: ALEMTUZUMAB
     Indication: MULTIPLE SCLEROSIS
     Dosage: UNK, UNK
     Route: 041

REACTIONS (6)
  - Rash [Unknown]
  - Feeling abnormal [Unknown]
  - Muscular weakness [Unknown]
  - Malaise [Unknown]
  - Fatigue [Unknown]
  - Depression [Unknown]
